FAERS Safety Report 4980441-4 (Version None)
Quarter: 2006Q2

REPORT INFORMATION
  Report Type: 
  Country: None (occurrence: None)
  Receive Date: 20060424
  Receipt Date: 20060412
  Transmission Date: 20061013
  Serious: Yes (Other)
  Sender: FDA-Public Use
  Company Number: JP-JPN-A200601217

PATIENT
  Age: 68 Year
  Sex: Male

DRUGS (1)
  1. VALTREX [Suspect]
     Indication: HERPES SIMPLEX
     Dosage: 1U TWICE PER DAY
     Route: 048
     Dates: start: 20060410, end: 20060412

REACTIONS (1)
  - PARALYSIS [None]
